FAERS Safety Report 9391236 (Version 1)
Quarter: 2013Q3

REPORT INFORMATION
  Report Type: Spontaneous
  Country: SE (occurrence: SE)
  Receive Date: 20130709
  Receipt Date: 20130709
  Transmission Date: 20140515
  Serious: Yes (Death, Hospitalization)
  Sender: FDA-Public Use
  Company Number: SE-SANOFI-AVENTIS-2013SA066388

PATIENT
  Age: 65 Year
  Sex: Male

DRUGS (15)
  1. CLAFORAN [Suspect]
     Indication: SEPSIS
     Dosage: IV INFUSION
     Route: 042
     Dates: start: 20121210, end: 20130112
  2. PENICILLIN G [Suspect]
     Indication: SEPSIS
     Dosage: ROUTE IV INFUSION?DOSAGE: 3GX3
     Route: 042
     Dates: start: 20121207, end: 20130110
  3. DALACIN [Suspect]
     Indication: SEPSIS
     Route: 042
     Dates: start: 20130112, end: 20130115
  4. MEROPENEM [Suspect]
     Indication: SEPSIS
     Route: 042
     Dates: start: 20130615
  5. ALVEDON [Concomitant]
  6. PRIMPERAN [Concomitant]
  7. NEXIUM [Concomitant]
  8. SIMVASTATIN [Concomitant]
  9. DIFLUCAN [Concomitant]
  10. ZOFRAN [Concomitant]
  11. TROMBYL [Concomitant]
  12. MORPHINE [Concomitant]
  13. ACETYLCYSTEINE [Concomitant]
  14. MOVICOL [Concomitant]
  15. SODIUM PICOSULFATE [Concomitant]

REACTIONS (2)
  - Stevens-Johnson syndrome [Fatal]
  - Pyrexia [Fatal]
